FAERS Safety Report 6697029-X (Version None)
Quarter: 2010Q2

REPORT INFORMATION
  Report Type: 
  Country: None (occurrence: None)
  Receive Date: 20100426
  Receipt Date: 20100414
  Transmission Date: 20101027
  Serious: No
  Sender: FDA-Public Use
  Company Number: US-JNJFOC-20100403814

PATIENT
  Sex: Female
  Weight: 56.7 kg

DRUGS (9)
  1. FENTANYL CITRATE [Suspect]
     Indication: PAIN
     Route: 062
  2. FENTANYL CITRATE [Suspect]
     Route: 062
  3. FENTANYL CITRATE [Suspect]
     Route: 062
  4. FENTANYL CITRATE [Suspect]
     Route: 062
  5. FENTANYL CITRATE [Suspect]
     Route: 062
  6. FENTANYL-100 [Suspect]
     Indication: PAIN
     Route: 062
  7. XANAX [Concomitant]
     Indication: STRESS
     Route: 048
  8. AMBIEN [Concomitant]
     Indication: SLEEP DISORDER
     Route: 048
  9. FORTEO [Concomitant]
     Indication: OSTEOPOROSIS
     Route: 058

REACTIONS (6)
  - BALANCE DISORDER [None]
  - DIZZINESS [None]
  - DRUG ADMINISTERED AT INAPPROPRIATE SITE [None]
  - DRUG INEFFECTIVE [None]
  - FEELING ABNORMAL [None]
  - NAUSEA [None]
